FAERS Safety Report 7089528-6 (Version None)
Quarter: 2010Q4

REPORT INFORMATION
  Report Type: 
  Country: None (occurrence: None)
  Receive Date: 20101108
  Receipt Date: 20101011
  Transmission Date: 20110411
  Serious: No
  Sender: FDA-Public Use
  Company Number: US-BAYER-201031958NA

PATIENT
  Age: 62 Year
  Sex: Female
  Weight: 74 kg

DRUGS (5)
  1. ULTRAVIST 370 [Suspect]
     Indication: COMPUTERISED TOMOGRAM ABDOMEN
     Dosage: TOTAL DAILY DOSE: 80 ML
     Route: 042
     Dates: start: 20100823, end: 20100823
  2. ULTRAVIST 370 [Suspect]
     Dosage: ULTRAVIST GIVEN AS AN ORAL CONTRAST
     Route: 048
     Dates: start: 20100823, end: 20100823
  3. LEVOTHYROXINE [Concomitant]
  4. AMLOPINE [Concomitant]
  5. INDAPAMIDE [Concomitant]

REACTIONS (2)
  - ERYTHEMA [None]
  - PRURITUS [None]
